FAERS Safety Report 24107978 (Version 1)
Quarter: 2024Q3

REPORT INFORMATION
  Report Type: Spontaneous
  Country: IN (occurrence: IN)
  Receive Date: 20240718
  Receipt Date: 20240718
  Transmission Date: 20241016
  Serious: Yes (Other)
  Sender: ROCHE
  Company Number: IN-ROCHE-3524551

PATIENT
  Age: 69 Year
  Sex: Male

DRUGS (9)
  1. VALGANCICLOVIR [Suspect]
     Active Substance: VALGANCICLOVIR
     Indication: Cytomegalovirus chorioretinitis
     Dosage: BD
     Route: 065
  2. GANCICLOVIR [Suspect]
     Active Substance: GANCICLOVIR
     Indication: Cytomegalovirus chorioretinitis
     Dosage: 2.5 MG/0.05 ML, INTRAVITREAL USE
     Route: 050
  3. GANCICLOVIR [Suspect]
     Active Substance: GANCICLOVIR
     Dosage: 2.5 MG/0.05 ML IN HIS RE, INTRAVITREAL USE
     Route: 050
  4. GANCICLOVIR [Suspect]
     Active Substance: GANCICLOVIR
     Dosage: 1 MONTH AFTER STOPPING  INTRAVITREAL USE
     Route: 050
  5. GANCICLOVIR [Suspect]
     Active Substance: GANCICLOVIR
     Dosage: RECEIVE 14 MORE INTRAVITREAL GANCICLOVIR INJECTIONS OVER THE NEXT 3 MONTHS (2.5 MG/0.05 ML) IN HIS R
     Route: 050
  6. MYCOPHENOLATE MOFETIL [Suspect]
     Active Substance: MYCOPHENOLATE MOFETIL
     Indication: Granulomatosis with polyangiitis
     Dosage: TWICE DAILY, SYSTEMIC IMMUNOSUPPRESSION
     Route: 065
  7. RITUXIMAB [Suspect]
     Active Substance: RITUXIMAB
     Indication: Granulomatosis with polyangiitis
     Dosage: SINCE LAST 3 YEARS, SYSTEMIC IMMUNOSUPPRESSION
     Route: 065
  8. METHOTREXATE [Suspect]
     Active Substance: METHOTREXATE
     Indication: Granulomatosis with polyangiitis
     Route: 065
  9. DEFLAZACORT [Suspect]
     Active Substance: DEFLAZACORT
     Indication: Granulomatosis with polyangiitis
     Route: 065

REACTIONS (6)
  - Neutropenia [Unknown]
  - Retinal depigmentation [Unknown]
  - Toxicity to various agents [Unknown]
  - Off label use [Unknown]
  - Off label use [Unknown]
  - Cytomegalovirus chorioretinitis [Unknown]
